FAERS Safety Report 6438025-7 (Version None)
Quarter: 2009Q4

REPORT INFORMATION
  Report Type: 
  Country: None (occurrence: None)
  Receive Date: 20091112
  Receipt Date: 20091106
  Transmission Date: 20100525
  Serious: Yes (Other)
  Sender: FDA-Public Use
  Company Number: US-MERCK-0911USA01479

PATIENT
  Sex: Female

DRUGS (2)
  1. PRIMAXIN [Suspect]
     Indication: PSEUDOMONAS INFECTION
     Route: 065
  2. TIGECYCLINE [Concomitant]
     Route: 065

REACTIONS (1)
  - PANCREATITIS [None]
